FAERS Safety Report 6225719-1 (Version None)
Quarter: 2009Q2

REPORT INFORMATION
  Report Type: 
  Country: None (occurrence: None)
  Receive Date: 20090612
  Receipt Date: 20090430
  Transmission Date: 20091009
  Serious: No
  Sender: FDA-Public Use
  Company Number: US-ABBOTT-09P-163-0570994-00

PATIENT
  Sex: Female

DRUGS (1)
  1. HUMIRA [Suspect]
     Indication: RHEUMATOID ARTHRITIS
     Dates: start: 20080809

REACTIONS (10)
  - BLISTER [None]
  - CHILLS [None]
  - CONJUNCTIVITIS [None]
  - COUGH [None]
  - FUNGAL INFECTION [None]
  - PYREXIA [None]
  - SINUS OPERATION [None]
  - SINUSITIS [None]
  - TINEA PEDIS [None]
  - WHITE BLOOD CELL COUNT INCREASED [None]
